FAERS Safety Report 24423445 (Version 4)
Quarter: 2025Q1

REPORT INFORMATION
  Report Type: Spontaneous
  Country: JP (occurrence: JP)
  Receive Date: 20241010
  Receipt Date: 20250111
  Transmission Date: 20250408
  Serious: Yes (Death, Life-Threatening, Other)
  Sender: AMGEN
  Company Number: JP-AMGEN-JPNSP2024198379

PATIENT
  Age: 66 Year
  Sex: Male

DRUGS (2)
  1. LUMAKRAS [Suspect]
     Active Substance: SOTORASIB
     Indication: K-ras gene mutation
     Dosage: 960 MILLIGRAM, QD
     Route: 048
     Dates: start: 20240912, end: 20241005
  2. LUMAKRAS [Suspect]
     Active Substance: SOTORASIB
     Indication: Non-small cell lung cancer

REACTIONS (10)
  - Pericarditis malignant [Not Recovered/Not Resolved]
  - Diastolic dysfunction [Not Recovered/Not Resolved]
  - Multiple organ dysfunction syndrome [Fatal]
  - Non-small cell lung cancer [Fatal]
  - Cardiac failure [Not Recovered/Not Resolved]
  - Renal failure [Not Recovered/Not Resolved]
  - Cardiac tamponade [Unknown]
  - Myocardial rupture [Unknown]
  - Pericardial effusion [Unknown]
  - Pleural effusion [Unknown]

NARRATIVE: CASE EVENT DATE: 20240101
